FAERS Safety Report 17092984 (Version 1)
Quarter: 2019Q4

REPORT INFORMATION
  Report Type: Spontaneous
  Country: JP (occurrence: JP)
  Receive Date: 20191129
  Receipt Date: 20191129
  Transmission Date: 20200122
  Serious: Yes (Other)
  Sender: FDA-Public Use
  Company Number: JP-UNITED THERAPEUTICS-UNT-2019-019660

PATIENT

DRUGS (1)
  1. REMODULIN [Suspect]
     Active Substance: TREPROSTINIL
     Indication: IMMUNOGLOBULIN G4 RELATED DISEASE
     Dosage: 0.040 ?G/KG, CONTINUING
     Route: 041
     Dates: start: 20190502

REACTIONS (7)
  - Lacrimation increased [Recovered/Resolved]
  - Lip swelling [Recovered/Resolved]
  - Immunoglobulin G4 related disease [Unknown]
  - Off label use [Unknown]
  - Swelling of eyelid [Recovered/Resolved]
  - Goitre [Recovered/Resolved]
  - Haemodynamic instability [Unknown]

NARRATIVE: CASE EVENT DATE: 2019
